FAERS Safety Report 6130985-7 (Version None)
Quarter: 2009Q1

REPORT INFORMATION
  Report Type: 
  Country: None (occurrence: None)
  Receive Date: 20090325
  Receipt Date: 20090310
  Transmission Date: 20090719
  Serious: Yes (Death, Other)
  Sender: FDA-Public Use
  Company Number: FR-PFIZER INC-2007023792

PATIENT

DRUGS (6)
  1. LYRICA [Suspect]
     Indication: NEURALGIA
     Dates: start: 20060922
  2. LYRICA [Suspect]
  3. LYRICA [Suspect]
     Indication: NEUROPATHY PERIPHERAL
  4. HEXAQUINE [Concomitant]
     Indication: NEURALGIA
     Route: 048
     Dates: start: 20060922
  5. HEXAQUINE [Concomitant]
     Indication: MUSCLE SPASMS
  6. AMLOR [Concomitant]
     Indication: HYPERTENSION
     Route: 048
     Dates: start: 20030301

REACTIONS (2)
  - CARDIAC ARREST [None]
  - LEFT VENTRICULAR FAILURE [None]
